FAERS Safety Report 9587579 (Version 4)
Quarter: 2014Q1

REPORT INFORMATION
  Report Type: Spontaneous
  Country: US (occurrence: US)
  Receive Date: 20131003
  Receipt Date: 20140303
  Transmission Date: 20141002
  Serious: Yes (Hospitalization, Other)
  Sender: FDA-Public Use
  Company Number: US-TEVA-435286USA

PATIENT
  Age: 59 Year
  Sex: Female
  Weight: 97.16 kg

DRUGS (12)
  1. WARFARIN [Suspect]
     Indication: BLOOD DISORDER
     Dosage: 2 WEEKS ONLY AFTER KNEE REPLACEMENT
     Dates: start: 201303
  2. PRAVASTATIN [Interacting]
     Indication: BLOOD CHOLESTEROL INCREASED
     Dosage: 80 MILLIGRAM DAILY;
     Dates: start: 2013
  3. TRAMADOL [Interacting]
     Indication: PAIN
     Dosage: 100 GRAM DAILY;
     Route: 048
  4. METOPROLOL [Interacting]
     Dosage: 100 MILLIGRAM DAILY;
  5. TRIAMTERENE/HYDROCHLOROTHIAZIDE [Suspect]
     Indication: BLOOD POTASSIUM INCREASED
     Dosage: 37.5/25
     Route: 048
     Dates: start: 201303
  6. CELEBREX [Interacting]
     Dosage: 200 MILLIGRAM DAILY;
     Route: 048
  7. TEMAZEPAM [Interacting]
     Indication: INSOMNIA
     Dosage: PRN
  8. UNSPECIFIED MEDICATION [Interacting]
     Indication: ANXIETY
  9. PROTONIX [Interacting]
     Indication: PRODUCT USED FOR UNKNOWN INDICATION
  10. UNSPECIFIED MEDICATION [Interacting]
     Indication: OSTEOARTHRITIS
     Dates: start: 2013
  11. TYLENOL [Interacting]
     Indication: PRODUCT USED FOR UNKNOWN INDICATION
     Dosage: PRN
  12. LEVOTHYROXINE [Interacting]
     Indication: THYROID DISORDER
     Dosage: 25 MICROGRAM DAILY;

REACTIONS (6)
  - Osteoarthritis [Unknown]
  - Blood potassium decreased [Unknown]
  - Blood cholesterol increased [Unknown]
  - Drug interaction [Unknown]
  - Drug ineffective [Unknown]
  - Joint stiffness [Not Recovered/Not Resolved]
